FAERS Safety Report 6944609-X (Version None)
Quarter: 2010Q3

REPORT INFORMATION
  Report Type: 
  Country: None (occurrence: None)
  Receive Date: 20100827
  Receipt Date: 20100823
  Transmission Date: 20110219
  Serious: Yes (Death)
  Sender: FDA-Public Use
  Company Number: JP-KINGPHARMUSA00001-K201001062

PATIENT
  Sex: Male

DRUGS (2)
  1. SYNERCID [Suspect]
     Dosage: UNK
     Route: 042
     Dates: start: 20100713, end: 20100809
  2. MEROPENEM [Concomitant]

REACTIONS (1)
  - DEATH [None]
